FAERS Safety Report 7082566-9 (Version None)
Quarter: 2010Q4

REPORT INFORMATION
  Report Type: 
  Country: None (occurrence: None)
  Receive Date: 20101104
  Receipt Date: 20101101
  Transmission Date: 20110411
  Serious: Yes (Other)
  Sender: FDA-Public Use
  Company Number: CH-WYE-G06889310

PATIENT
  Sex: Female

DRUGS (1)
  1. EFFEXOR [Suspect]
     Dosage: UNKNOWN DOSE AND FREQUENCY

REACTIONS (7)
  - DEPRESSION [None]
  - DRUG EFFECT DECREASED [None]
  - FATIGUE [None]
  - FEELING OF DESPAIR [None]
  - GASTRIC BYPASS [None]
  - MALABSORPTION [None]
  - SUICIDAL IDEATION [None]
